FAERS Safety Report 6177471-6 (Version None)
Quarter: 2009Q2

REPORT INFORMATION
  Report Type: 
  Country: None (occurrence: None)
  Receive Date: 20090501
  Receipt Date: 20090501
  Transmission Date: 20091009
  Serious: No
  Sender: FDA-Public Use
  Company Number: None

PATIENT
  Age: 46 Year
  Sex: Male
  Weight: 86 kg

DRUGS (5)
  1. INSULIN ASPART [Suspect]
     Indication: DIABETES MELLITUS
     Dosage: SSI-M  PRN
  2. INSULIN GLARGINE [Suspect]
     Indication: DIABETES MELLITUS
     Dosage: 5 UNITS SQ Q HS
     Route: 058
     Dates: start: 20090204, end: 20090205
  3. LANSOPRAZOLE [Concomitant]
  4. METRONIDAZOLE [Concomitant]
  5. THIAMINE HCL [Concomitant]

REACTIONS (3)
  - BLOOD GLUCOSE INCREASED [None]
  - BODY TEMPERATURE DECREASED [None]
  - FEELING COLD [None]
